FAERS Safety Report 25744644 (Version 1)
Quarter: 2025Q3

REPORT INFORMATION
  Report Type: Spontaneous
  Country: EU (occurrence: EU)
  Receive Date: 20250901
  Receipt Date: 20250901
  Transmission Date: 20251020
  Serious: Yes (Life-Threatening, Hospitalization)
  Sender: SANOFI AVENTIS
  Company Number: EU-SA-2025SA260113

PATIENT
  Sex: Female

DRUGS (1)
  1. ISATUXIMAB [Suspect]
     Active Substance: ISATUXIMAB
     Indication: Plasma cell myeloma

REACTIONS (4)
  - Oxygen saturation decreased [Unknown]
  - Tachycardia [Unknown]
  - Pyrexia [Unknown]
  - Infusion related reaction [Unknown]
